FAERS Safety Report 9162878 (Version 2)
Quarter: 2013Q2

REPORT INFORMATION
  Report Type: Spontaneous
  Country: US (occurrence: US)
  Receive Date: 20130314
  Receipt Date: 20130419
  Transmission Date: 20140414
  Serious: Yes (Other)
  Sender: FDA-Public Use
  Company Number: PHEH2013US004998

PATIENT
  Age: 44 Year
  Sex: Female
  Weight: 112.2 kg

DRUGS (3)
  1. GILENYA [Suspect]
     Indication: MULTIPLE SCLEROSIS
     Dosage: 0.5 MG, QD
     Route: 048
     Dates: start: 20121227
  2. SIMVASTATIN [Concomitant]
     Indication: HYPERLIPIDAEMIA
     Dosage: 20 MG, QHS
     Route: 048
  3. TRAZODONE [Concomitant]
     Dosage: 50 MG, QHS (AS NEEDED)
     Route: 048

REACTIONS (2)
  - White blood cell count decreased [Recovered/Resolved]
  - Lymphocyte count decreased [Unknown]
